FAERS Safety Report 15056510 (Version 3)
Quarter: 2018Q3

REPORT INFORMATION
  Report Type: Report from Study
  Country: None (occurrence: CA)
  Receive Date: 20180623
  Receipt Date: 20180724
  Transmission Date: 20181010
  Serious: Yes (Hospitalization, Other)
  Sender: FDA-Public Use
  Company Number: CA-ABBVIE-18K-028-2398347-00

PATIENT
  Age: 33 Year
  Sex: Male
  Weight: 60 kg

DRUGS (2)
  1. HUMIRA [Suspect]
     Active Substance: ADALIMUMAB
     Route: 058
     Dates: start: 20180601
  2. HUMIRA [Suspect]
     Active Substance: ADALIMUMAB
     Indication: CROHN^S DISEASE
     Route: 058
     Dates: start: 20140613, end: 2018

REACTIONS (6)
  - Duodenal switch [Unknown]
  - Crohn^s disease [Not Recovered/Not Resolved]
  - Duodenal stenosis [Recovered/Resolved]
  - Renal vein compression [Not Recovered/Not Resolved]
  - Weight abnormal [Unknown]
  - Procedural intestinal perforation [Unknown]

NARRATIVE: CASE EVENT DATE: 20180425
